FAERS Safety Report 6058660-8 (Version None)
Quarter: 2009Q1

REPORT INFORMATION
  Report Type: 
  Country: None (occurrence: None)
  Receive Date: 20090130
  Receipt Date: 20090120
  Transmission Date: 20090719
  Serious: Yes (Hospitalization, Other)
  Sender: FDA-Public Use
  Company Number: FR-PFIZER INC-2009160417

PATIENT

DRUGS (18)
  1. LYRICA [Suspect]
     Dosage: EVERY DAY
     Route: 048
  2. DITROPAN [Suspect]
     Dosage: EVERY DAY
     Route: 048
  3. HALDOL [Suspect]
     Dosage: UNK
     Route: 048
     Dates: start: 20080921, end: 20080925
  4. PARKINANE [Suspect]
     Indication: PARKINSON'S DISEASE
     Dosage: EVERY DAY
     Route: 048
  5. LOXAPAC [Suspect]
     Dosage: EVERY DAY
     Route: 048
  6. CYMBALTA [Suspect]
     Dosage: EVERY DAY
     Route: 048
  7. PARACETAMOL [Concomitant]
     Dosage: 1 G, 4X/DAY
     Route: 048
  8. LEVOTHYROX [Concomitant]
     Dosage: 75 UG, 1X/DAY
     Route: 048
  9. PLAVIX [Concomitant]
     Dosage: 1 DF, 1X/DAY
     Route: 048
  10. TERALITHE [Concomitant]
     Dosage: 1 DF, 1X/DAY
     Route: 048
  11. MESTINON [Concomitant]
     Indication: HYPOTONIA
     Dosage: EVERY DAY
     Route: 048
     Dates: start: 20081001
  12. NEOSTIGMINE [Concomitant]
     Dosage: UNK
     Route: 042
     Dates: start: 20080919, end: 20080921
  13. PARAPSYLLIUM [Concomitant]
     Dosage: EVERY DAY
     Route: 048
  14. NULYTELY [Concomitant]
     Dosage: UNK
     Route: 048
     Dates: start: 20081001
  15. SPAGULAX [Concomitant]
     Dosage: EVERY DAY
     Route: 048
     Dates: start: 20080925
  16. DEPAKENE [Concomitant]
     Dosage: EVERY DAY
     Route: 048
  17. NOCTAMID [Concomitant]
     Dosage: 2 MG, 1X/DAY
     Route: 048
  18. SERESTA [Concomitant]
     Dosage: EVERY DAY
     Route: 048

REACTIONS (1)
  - INTESTINAL OBSTRUCTION [None]
